FAERS Safety Report 4424849-4 (Version None)
Quarter: 2004Q3

REPORT INFORMATION
  Report Type: 
  Country: None (occurrence: None)
  Receive Date: 20040812
  Receipt Date: 20040806
  Transmission Date: 20050211
  Serious: Yes (Hospitalization)
  Sender: FDA-Public Use
  Company Number: IE-MERCK-0408GBR00075

PATIENT
  Age: 80 Year
  Sex: Female

DRUGS (14)
  1. [THERAPY UNSPECIFIED] [Concomitant]
     Route: 065
  2. ALENDRONATE SODIUM [Concomitant]
     Route: 048
  3. BUDESONIDE [Concomitant]
     Route: 065
  4. CALCIUM (UNSPECIFIED) [Concomitant]
     Route: 065
  5. CITALOPRAM [Concomitant]
     Route: 065
  6. ESOMEPRAZOLE MAGNESIUM [Concomitant]
     Route: 065
  7. FENTANYL [Concomitant]
     Route: 061
  8. FUROSEMIDE [Concomitant]
     Route: 065
  9. IRON (UNSPECIFIED) [Concomitant]
     Route: 065
  10. PRAMIPEXOLE [Concomitant]
     Route: 065
  11. PREDNISOLONE [Concomitant]
     Route: 065
  12. VIOXX [Suspect]
     Route: 048
     Dates: start: 20040721, end: 20040701
  13. TINZAPARIN SODIUM [Concomitant]
     Route: 065
  14. TRAMADOL HYDROCHLORIDE [Concomitant]
     Route: 065

REACTIONS (1)
  - CRYPTOGENIC ORGANIZING PNEUMONIA [None]
